FAERS Safety Report 9507056 (Version 1)
Quarter: 2013Q1

REPORT INFORMATION
  Report Type: Spontaneous
  Country: US (occurrence: None)
  Receive Date: 20130305
  Receipt Date: 20130305
  Transmission Date: 20140127
  Serious: Yes (Other)
  Sender: FDA-Public Use
  Company Number: 163-21880-11040982

PATIENT
  Age: 64 Year
  Sex: Female

DRUGS (2)
  1. REVLIMID (LENALIDOMIDE) (15 MILLIGRAM, CAPSULES) [Suspect]
     Indication: PLASMA CELL MYELOMA
     Dosage: 15 MG, 21 IN 21 D, PO?
     Route: 048
     Dates: start: 20110316
  2. MULTIVITAMIN (MULTIVITAMINS) (UNKNOWN) [Concomitant]

REACTIONS (2)
  - Rhinorrhoea [None]
  - Ecchymosis [None]
